FAERS Safety Report 25709355 (Version 1)
Quarter: 2025Q3

REPORT INFORMATION
  Report Type: Spontaneous
  Country: EU (occurrence: EU)
  Receive Date: 20250821
  Receipt Date: 20250821
  Transmission Date: 20251021
  Serious: Yes (Other)
  Sender: BOEHRINGER INGELHEIM
  Company Number: None

PATIENT
  Age: 61 Year
  Sex: Male

DRUGS (3)
  1. NINTEDANIB [Suspect]
     Active Substance: NINTEDANIB
     Indication: Lung opacity
     Dates: start: 20240917, end: 20250624
  2. Roactemra 20 mg/ml [Concomitant]
     Indication: Rheumatoid arthritis
     Dosage: 20 MG/ML 1 VIAL/WEEK
     Dates: start: 2022
  3. Combinations (Sitagliptinum+Metforminum) [Concomitant]
     Indication: Product used for unknown indication

REACTIONS (5)
  - Sepsis [Recovered/Resolved]
  - Nausea [Recovered/Resolved]
  - Intestinal transit time increased [Recovered/Resolved]
  - Localised infection [Recovered/Resolved]
  - Proteinuria [Recovered/Resolved with Sequelae]

NARRATIVE: CASE EVENT DATE: 20240901
